FAERS Safety Report 4282555-3 (Version None)
Quarter: 2004Q1

REPORT INFORMATION
  Report Type: 
  Country: None (occurrence: None)
  Receive Date: 20040129
  Receipt Date: 20040122
  Transmission Date: 20041129
  Serious: Yes (Other)
  Sender: FDA-Public Use
  Company Number: 200410379BCC

PATIENT
  Age: 70 Year
  Sex: Male
  Weight: 95.2554 kg

DRUGS (3)
  1. ALEVE (CAPLET) [Suspect]
     Indication: ARTHRALGIA
     Dosage: 220 MG, ONCE, ORAL
     Route: 048
     Dates: start: 20040122
  2. ALEVE (CAPLET) [Suspect]
     Indication: PAIN IN EXTREMITY
     Dosage: 220 MG, ONCE, ORAL
     Route: 048
     Dates: start: 20040122
  3. HIGH BLOOD PRESSURE PILL [Concomitant]

REACTIONS (3)
  - CHEST PAIN [None]
  - GENERALISED OEDEMA [None]
  - PRURITUS [None]
